FAERS Safety Report 10788297 (Version 1)
Quarter: 2015Q1

REPORT INFORMATION
  Report Type: Spontaneous
  Country: TR (occurrence: None)
  Receive Date: 20150210
  Receipt Date: 20150210
  Transmission Date: 20150721
  Serious: Yes (Life-Threatening)
  Sender: FDA-Public Use
  Company Number: FK201500524

PATIENT
  Age: 15 Year
  Sex: Male

DRUGS (3)
  1. CALICYLATE [Concomitant]
     Active Substance: UNSPECIFIED INGREDIENT
  2. METOPROLOL INJECTION (MANUFACTURER UNKNOWN) (METOPROLOL) [Suspect]
     Active Substance: METOPROLOL
     Indication: PRODUCT USED FOR UNKNOWN INDICATION
  3. SERTRALINE [Concomitant]
     Active Substance: SERTRALINE HYDROCHLORIDE

REACTIONS (3)
  - Hypocalcaemia [None]
  - Toxicity to various agents [None]
  - Hypokalaemia [None]
